FAERS Safety Report 14592849 (Version 7)
Quarter: 2019Q3

REPORT INFORMATION
  Report Type: Report from Study
  Country: CA (occurrence: CA)
  Receive Date: 20180302
  Receipt Date: 20190725
  Transmission Date: 20191004
  Serious: Yes (Hospitalization)
  Sender: FDA-Public Use
  Company Number: CA-HLSUS-2018-CA-000268

PATIENT
  Age: 39 Year
  Sex: Female
  Weight: 56.3 kg

DRUGS (1)
  1. CLOZARIL [Suspect]
     Active Substance: CLOZAPINE
     Indication: SCHIZOPHRENIA
     Route: 048
     Dates: start: 20171114, end: 20190715

REACTIONS (5)
  - White blood cell count decreased [Unknown]
  - Breast cancer [Unknown]
  - Neutropenia [Unknown]
  - Treatment noncompliance [Unknown]
  - Influenza like illness [Unknown]

NARRATIVE: CASE EVENT DATE: 20180226
